FAERS Safety Report 24112641 (Version 3)
Quarter: 2025Q3

REPORT INFORMATION
  Report Type: Report from Study
  Country: MX (occurrence: MX)
  Receive Date: 20240719
  Receipt Date: 20250803
  Transmission Date: 20251020
  Serious: Yes (Hospitalization, Disabling, Other)
  Sender: ALEXION PHARMACEUTICALS
  Company Number: 2024A139762

PATIENT
  Age: 54 Year
  Sex: Female
  Weight: 69.5 kg

DRUGS (9)
  1. FASENRA [Suspect]
     Active Substance: BENRALIZUMAB
     Indication: Asthma
     Dosage: 1 DOSAGE FORM, UNK, FREQUENCY: UNK
     Dates: start: 202104, end: 202107
  2. FASENRA [Suspect]
     Active Substance: BENRALIZUMAB
     Dosage: 1 DOSAGE FORM, Q8W
     Dates: start: 202108, end: 202402
  3. TEZEPELUMAB [Suspect]
     Active Substance: TEZEPELUMAB
     Indication: Asthma
     Dosage: 1 DOSAGE FORM, QMONTH
     Dates: start: 20240603
  4. TEZEPELUMAB [Suspect]
     Active Substance: TEZEPELUMAB
  5. Omega [Concomitant]
     Route: 065
  6. Magnesio [Concomitant]
     Route: 065
  7. Histofil [Concomitant]
     Route: 065
  8. ESCITALOPRAM [Concomitant]
     Active Substance: ESCITALOPRAM OXALATE
     Indication: Depression
     Dosage: 1 DOSAGE FORM, QD
     Dates: start: 2020
  9. BILASTINE [Concomitant]
     Active Substance: BILASTINE
     Indication: Hypersensitivity
     Dosage: 40 MILLIGRAM, QD
     Dates: start: 202501

REACTIONS (34)
  - Carpal tunnel syndrome [Not Recovered/Not Resolved]
  - Haemorrhoids [Recovering/Resolving]
  - Neuropathy peripheral [Not Recovered/Not Resolved]
  - Vascular occlusion [Recovering/Resolving]
  - Hernia perforation [Recovering/Resolving]
  - Colitis [Not Recovered/Not Resolved]
  - Pulmonary oedema [Not Recovered/Not Resolved]
  - Precancerous cells present [Unknown]
  - Nervous system disorder [Not Recovered/Not Resolved]
  - Inflammation [Not Recovered/Not Resolved]
  - Arthralgia [Not Recovered/Not Resolved]
  - Bone pain [Not Recovered/Not Resolved]
  - Myalgia [Recovering/Resolving]
  - COVID-19 [Recovered/Resolved]
  - Hypoaesthesia [Not Recovered/Not Resolved]
  - Peripheral swelling [Recovering/Resolving]
  - Feeling abnormal [Unknown]
  - Multiple allergies [Unknown]
  - Joint swelling [Not Recovered/Not Resolved]
  - Drug effect less than expected [Unknown]
  - Pain [Not Recovered/Not Resolved]
  - Musculoskeletal discomfort [Not Recovered/Not Resolved]
  - Limb discomfort [Not Recovered/Not Resolved]
  - Drug hypersensitivity [Unknown]
  - Pain in extremity [Not Recovered/Not Resolved]
  - Malaise [Not Recovered/Not Resolved]
  - Swelling [Not Recovered/Not Resolved]
  - Sensitive skin [Not Recovered/Not Resolved]
  - Electric shock sensation [Not Recovered/Not Resolved]
  - Paraesthesia [Not Recovered/Not Resolved]
  - Abdominal distension [Not Recovered/Not Resolved]
  - Weight increased [Not Recovered/Not Resolved]
  - Drug ineffective [Not Recovered/Not Resolved]
  - Chest discomfort [Not Recovered/Not Resolved]

NARRATIVE: CASE EVENT DATE: 20220101
